FAERS Safety Report 7244077-7 (Version None)
Quarter: 2011Q1

REPORT INFORMATION
  Report Type: 
  Country: None (occurrence: None)
  Receive Date: 20110125
  Receipt Date: 20110118
  Transmission Date: 20110831
  Serious: Yes (Death, Hospitalization, Other)
  Sender: FDA-Public Use
  Company Number: US-PFIZER INC-2009220880

PATIENT
  Sex: Female
  Weight: 73 kg

DRUGS (7)
  1. PREMARIN [Suspect]
     Indication: HORMONE REPLACEMENT THERAPY
     Dosage: 0.625 MG, UNK
     Route: 048
     Dates: start: 19950101, end: 20020801
  2. LEVOXYL [Concomitant]
     Indication: THYROID DISORDER
     Dosage: 0.125MG AND 0.237MG
     Dates: start: 19990101, end: 20020101
  3. PROMETRIUM [Suspect]
     Indication: HORMONE REPLACEMENT THERAPY
     Dosage: 200 MG, UNK
     Dates: start: 19990101, end: 20020101
  4. PREMPRO [Suspect]
     Indication: HORMONE REPLACEMENT THERAPY
     Dosage: UNK
     Route: 048
  5. THYROID [Concomitant]
     Indication: THYROID CANCER
     Dosage: UNK
     Dates: start: 19630101
  6. PROVERA [Suspect]
     Indication: HORMONE REPLACEMENT THERAPY
     Dosage: 10MG AND 5MG
     Route: 048
     Dates: start: 19950101, end: 20020801
  7. ESTRATEST [Suspect]
     Indication: HORMONE REPLACEMENT THERAPY
     Dosage: UNK

REACTIONS (2)
  - OVARIAN CANCER [None]
  - FALLOPIAN TUBE CANCER STAGE III [None]
